FAERS Safety Report 6413092-5 (Version None)
Quarter: 2009Q4

REPORT INFORMATION
  Report Type: 
  Country: None (occurrence: None)
  Receive Date: 20091022
  Receipt Date: 20091022
  Transmission Date: 20100525
  Serious: Yes (Other)
  Sender: FDA-Public Use
  Company Number: None

PATIENT
  Age: 27 Year
  Sex: Male
  Weight: 63.5036 kg

DRUGS (1)
  1. TREN [Suspect]
     Indication: WEIGHT CONTROL

REACTIONS (1)
  - ERECTILE DYSFUNCTION [None]
